FAERS Safety Report 20638767 (Version 4)
Quarter: 2025Q2

REPORT INFORMATION
  Report Type: Spontaneous
  Country: US (occurrence: None)
  Receive Date: 20220325
  Receipt Date: 20250626
  Transmission Date: 20250716
  Serious: Yes (Hospitalization, Other)
  Sender: INCYTE
  Company Number: US-INCYTE CORPORATION-2022IN002677

PATIENT
  Age: 76 Year
  Weight: 51.701 kg

DRUGS (7)
  1. JAKAFI [Suspect]
     Active Substance: RUXOLITINIB
     Indication: Polycythaemia vera
     Dosage: 10 MILLIGRAM, BID
  2. JAKAFI [Suspect]
     Active Substance: RUXOLITINIB
     Dosage: 10 MILLIGRAM, BID
  3. JAKAFI [Suspect]
     Active Substance: RUXOLITINIB
     Dosage: 10 MILLIGRAM, BID
  4. JAKAFI [Suspect]
     Active Substance: RUXOLITINIB
     Dosage: 10 MILLIGRAM, BID
  5. JAKAFI [Suspect]
     Active Substance: RUXOLITINIB
     Dosage: 20 MILLIGRAM, BID
  6. JAKAFI [Suspect]
     Active Substance: RUXOLITINIB
     Dosage: 10 MILLIGRAM, BID
  7. JAKAFI [Suspect]
     Active Substance: RUXOLITINIB
     Dosage: 10 MILLIGRAM, BID

REACTIONS (22)
  - Pneumonia [Unknown]
  - Influenza [Not Recovered/Not Resolved]
  - Nail discolouration [Unknown]
  - Trichorrhexis [Unknown]
  - Alopecia [Recovering/Resolving]
  - Depressed mood [Not Recovered/Not Resolved]
  - Sleep disorder [Unknown]
  - Laboratory test abnormal [Recovering/Resolving]
  - Seasonal allergy [Unknown]
  - Hair texture abnormal [Unknown]
  - Dry skin [Unknown]
  - Abdominal distension [Not Recovered/Not Resolved]
  - Splenomegaly [Unknown]
  - Malaise [Unknown]
  - Oropharyngeal pain [Not Recovered/Not Resolved]
  - Illness [Not Recovered/Not Resolved]
  - Blood iron decreased [Unknown]
  - Asthenia [Unknown]
  - Product dose omission in error [Unknown]
  - Product dose omission issue [Unknown]
  - Weight increased [Unknown]
  - Constipation [Not Recovered/Not Resolved]
